FAERS Safety Report 24453720 (Version 2)
Quarter: 2024Q4

REPORT INFORMATION
  Report Type: Report from Study
  Country: US (occurrence: US)
  Receive Date: 20241017
  Receipt Date: 20241018
  Transmission Date: 20250115
  Serious: No
  Sender: ROCHE
  Company Number: US-ROCHE-3381554

PATIENT
  Age: 50 Year
  Sex: Female

DRUGS (11)
  1. RITUXAN [Suspect]
     Active Substance: RITUXIMAB
     Indication: Demyelination
     Dosage: THEN 6 MONTHS,  DATE OF SERVICE : 17/JUL/2023
     Route: 065
  2. RITUXAN [Suspect]
     Active Substance: RITUXIMAB
     Indication: Neuromyelitis optica spectrum disorder
  3. CELLCEPT [Suspect]
     Active Substance: MYCOPHENOLATE MOFETIL
     Indication: Neuromyelitis optica spectrum disorder
     Route: 065
  4. VITAMIN D3 [Concomitant]
     Active Substance: CHOLECALCIFEROL
  5. ZYRTEC [Concomitant]
     Active Substance: CETIRIZINE HYDROCHLORIDE
  6. MOBIC [Concomitant]
     Active Substance: MELOXICAM
  7. CYANOCOBALAMIN [Concomitant]
     Active Substance: CYANOCOBALAMIN
     Route: 065
  8. AIMOVIG [Concomitant]
     Active Substance: ERENUMAB-AOOE
  9. PREVACID [Concomitant]
     Active Substance: LANSOPRAZOLE
  10. COZAAR [Concomitant]
     Active Substance: LOSARTAN POTASSIUM
  11. NORFLEX [Concomitant]
     Active Substance: ORPHENADRINE CITRATE

REACTIONS (2)
  - Off label use [Unknown]
  - Drug hypersensitivity [Unknown]
